FAERS Safety Report 18772981 (Version 1)
Quarter: 2021Q1

REPORT INFORMATION
  Report Type: Spontaneous
  Country: US (occurrence: US)
  Receive Date: 20210121
  Receipt Date: 20210121
  Transmission Date: 20210419
  Serious: Yes (Hospitalization)
  Sender: FDA-Public Use
  Company Number: None

PATIENT
  Age: 53 Year
  Sex: Female
  Weight: 56.25 kg

DRUGS (29)
  1. CYCLOBENZAPRINE. [Concomitant]
     Active Substance: CYCLOBENZAPRINE
  2. OXYGEN. [Concomitant]
     Active Substance: OXYGEN
  3. LEVAQUIN [Concomitant]
     Active Substance: LEVOFLOXACIN
  4. MEDROL DOSE PACK [Concomitant]
     Active Substance: METHYLPREDNISOLONE
  5. VITAMIN C [Concomitant]
     Active Substance: ASCORBIC ACID
  6. CALCITRIOL. [Concomitant]
     Active Substance: CALCITRIOL
  7. LASIX [Concomitant]
     Active Substance: FUROSEMIDE
  8. NORCO [Concomitant]
     Active Substance: ACETAMINOPHEN\HYDROCODONE BITARTRATE
  9. CEFTRIAXONE. [Concomitant]
     Active Substance: CEFTRIAXONE
  10. BENADRYL [Concomitant]
     Active Substance: DIPHENHYDRAMINE HYDROCHLORIDE
  11. REMDESIVIR. [Concomitant]
     Active Substance: REMDESIVIR
  12. CYMBALTA [Concomitant]
     Active Substance: DULOXETINE HYDROCHLORIDE
  13. PLAQUENIL [Concomitant]
     Active Substance: HYDROXYCHLOROQUINE SULFATE
  14. BENZONATATE. [Concomitant]
     Active Substance: BENZONATATE
  15. MULTI VITAMIN [Concomitant]
     Active Substance: VITAMINS
  16. ZOFRAN [Concomitant]
     Active Substance: ONDANSETRON HYDROCHLORIDE
  17. CONVALESCENT PLASMA [Concomitant]
     Active Substance: HUMAN PLASMA
  18. CYANOCOBALAMIN. [Concomitant]
     Active Substance: CYANOCOBALAMIN
  19. AZITHROMYCIN ANHYDROUS. [Concomitant]
     Active Substance: AZITHROMYCIN ANHYDROUS
  20. BAMLANIVIMAB 700 MG [Suspect]
     Active Substance: BAMLANIVIMAB
     Indication: COVID-19
     Dates: start: 20210118, end: 20210118
  21. VITAMIN D3 [Concomitant]
     Active Substance: CHOLECALCIFEROL
  22. ALBUTEROL. [Concomitant]
     Active Substance: ALBUTEROL
  23. ENOXAPARIN [Concomitant]
     Active Substance: ENOXAPARIN
  24. MELATONIN [Concomitant]
     Active Substance: MELATONIN
  25. ZYRTEC [Concomitant]
     Active Substance: CETIRIZINE HYDROCHLORIDE
  26. DEXAMETHASONE. [Concomitant]
     Active Substance: DEXAMETHASONE
  27. KLOR?CON [Concomitant]
     Active Substance: POTASSIUM CHLORIDE
  28. ULTRAM [Concomitant]
     Active Substance: TRAMADOL HYDROCHLORIDE
  29. VITAMIN B12 [Concomitant]
     Active Substance: CYANOCOBALAMIN

REACTIONS (2)
  - COVID-19 pneumonia [None]
  - Dyspnoea [None]

NARRATIVE: CASE EVENT DATE: 20210118
